FAERS Safety Report 6735370-2 (Version None)
Quarter: 2010Q2

REPORT INFORMATION
  Report Type: 
  Country: None (occurrence: None)
  Receive Date: 20100521
  Receipt Date: 20100512
  Transmission Date: 20101027
  Serious: Yes (Other)
  Sender: FDA-Public Use
  Company Number: CA-ASTRAZENECA-2010SE21898

PATIENT
  Age: 1064 Month
  Sex: Male

DRUGS (14)
  1. TENORMIN [Suspect]
     Indication: SUPRAVENTRICULAR TACHYCARDIA
     Route: 048
     Dates: start: 20080101
  2. TENORMIN [Suspect]
     Indication: HEART RATE
     Route: 048
     Dates: start: 20080101
  3. TENORMIN [Suspect]
     Route: 048
     Dates: start: 20090701
  4. TENORMIN [Suspect]
     Route: 048
     Dates: start: 20090701
  5. TENORMIN [Suspect]
     Route: 048
     Dates: start: 20100301
  6. TENORMIN [Suspect]
     Route: 048
     Dates: start: 20100301
  7. CRESTOR [Suspect]
     Indication: HYPERCHOLESTEROLAEMIA
     Route: 048
     Dates: start: 20080101
  8. METFORMIN HYDROCHLORIDE [Concomitant]
     Indication: TYPE 2 DIABETES MELLITUS
     Route: 048
     Dates: start: 20080101
  9. WARFARIN SODIUM [Concomitant]
     Indication: ATRIAL FIBRILLATION
     Route: 048
     Dates: start: 20080701
  10. OMEGA FISH OIL [Concomitant]
     Dosage: THREE TIMES A DAY
     Route: 048
  11. GLUCOSAMINE SULFATE [Concomitant]
     Route: 048
  12. CALCIUM MAGNESIUM [Concomitant]
     Dosage: ONCE A DAY
  13. VITAMIN D [Concomitant]
     Route: 048
  14. ASPIRIN [Concomitant]
     Dates: start: 20070401, end: 20090701

REACTIONS (3)
  - AGEUSIA [None]
  - ANOSMIA [None]
  - FATIGUE [None]
